FAERS Safety Report 21350686 (Version 1)
Quarter: 2022Q3

REPORT INFORMATION
  Report Type: Spontaneous
  Country: US (occurrence: US)
  Receive Date: 20220919
  Receipt Date: 20220919
  Transmission Date: 20221026
  Serious: Yes (Hospitalization)
  Sender: FDA-Public Use
  Company Number: US-RIGEL PHARMACEUTICALS, INC.-2022FOS000721

PATIENT
  Sex: Female

DRUGS (1)
  1. TAVALISSE [Suspect]
     Active Substance: FOSTAMATINIB
     Indication: Immune thrombocytopenia
     Dosage: 150 MG, BID
     Route: 048

REACTIONS (6)
  - Confusional state [Unknown]
  - Oxygen saturation decreased [Unknown]
  - Carbon dioxide increased [Unknown]
  - Blood glucose increased [Unknown]
  - Platelet count [Unknown]
  - Product dose omission issue [Unknown]
